FAERS Safety Report 8062811-3 (Version None)
Quarter: 2011Q4

REPORT INFORMATION
  Report Type: 
  Country: None (occurrence: None)
  Receive Date: 20111221
  Receipt Date: 20110823
  Transmission Date: 20120403
  Serious: Yes (Other)
  Sender: FDA-Public Use
  Company Number: PHHY2011US51761

PATIENT
  Age: 14 Year
  Sex: Female
  Weight: 50.8 kg

DRUGS (12)
  1. ASPIRIN [Concomitant]
  2. TACROLIMUS [Concomitant]
  3. AMLODIPINE [Concomitant]
  4. PRAVASTATIN [Concomitant]
  5. EXJADE [Suspect]
     Indication: IRON OVERLOAD
     Dosage: 1000 MG, QD, ORAL 1500 MG, ORAL
     Route: 048
     Dates: start: 20110502, end: 20110602
  6. EXJADE [Suspect]
     Indication: TRANSFUSION
     Dosage: 1000 MG, QD, ORAL 1500 MG, ORAL
     Route: 048
     Dates: start: 20110502, end: 20110602
  7. EXJADE [Suspect]
     Indication: IRON OVERLOAD
     Dosage: 1000 MG, QD, ORAL 1500 MG, ORAL
     Route: 048
     Dates: start: 20080502, end: 20110206
  8. EXJADE [Suspect]
     Indication: TRANSFUSION
     Dosage: 1000 MG, QD, ORAL 1500 MG, ORAL
     Route: 048
     Dates: start: 20080502, end: 20110206
  9. LASIX [Concomitant]
  10. PREDNISONE TAB [Concomitant]
  11. MYCOPHENOLATE MOFETIL [Concomitant]
  12. INSULIN LISPRO (INSULIN LISPRO) [Concomitant]

REACTIONS (2)
  - RENAL DISORDER [None]
  - BLOOD CREATININE INCREASED [None]
